FAERS Safety Report 7219719-2 (Version None)
Quarter: 2011Q1

REPORT INFORMATION
  Report Type: 
  Country: None (occurrence: None)
  Receive Date: 20110111
  Receipt Date: 20110106
  Transmission Date: 20110831
  Serious: Yes (Death)
  Sender: FDA-Public Use
  Company Number: PHHY2011MX01085

PATIENT
  Age: 51 Year
  Sex: Female

DRUGS (7)
  1. MYCOPHENOLATE MOFETIL [Concomitant]
     Dosage: UNK
  2. PREDNISONE [Concomitant]
  3. ACYCLOVIR [Concomitant]
  4. SULFAMETHOXAZOLE AND TRIMETHOPRIM [Concomitant]
     Dosage: 1 DF, QD
  5. CEFUROXIME [Concomitant]
     Dosage: 750 MG, THREE DOSE
     Route: 042
  6. AZATHIOPRINE [Concomitant]
  7. CYCLOSPORINE [Suspect]
     Indication: RENAL TRANSPLANT

REACTIONS (7)
  - OESOPHAGEAL INFECTION [None]
  - PSEUDOMONAS INFECTION [None]
  - SEPSIS [None]
  - CANDIDIASIS [None]
  - URINARY TRACT INFECTION [None]
  - PNEUMONIA [None]
  - CYTOMEGALOVIRUS INFECTION [None]
